FAERS Safety Report 8469208 (Version 2)
Quarter: 2019Q4

REPORT INFORMATION
  Report Type: Spontaneous
  Country: DE (occurrence: DE)
  Receive Date: 20120321
  Receipt Date: 20191223
  Transmission Date: 20200122
  Serious: Yes (Congenital Anomaly, Other)
  Sender: FDA-Public Use
  Company Number: DE-UCBSA-053364

PATIENT
  Age: 0 Year
  Sex: Male
  Weight: 3.6 kg

DRUGS (3)
  1. LAMOTRIGIN [Suspect]
     Active Substance: LAMOTRIGINE
     Indication: EPILEPSY
     Dosage: 225-225-250MG
     Route: 064
     Dates: start: 20091111, end: 20100811
  2. VIMPAT [Suspect]
     Active Substance: LACOSAMIDE
     Indication: EPILEPSY
     Dosage: 100 MG, 2X/DAY (BID)
     Route: 064
     Dates: start: 200911, end: 20100811
  3. FOLSAURE [Concomitant]
     Active Substance: FOLIC ACID
     Indication: PROPHYLAXIS OF NEURAL TUBE DEFECT
     Dosage: 5 MG/DAY
     Route: 064
     Dates: start: 200911

REACTIONS (5)
  - Maternal exposure during pregnancy [Unknown]
  - Coarctation of the aorta [Unknown]
  - Hyperbilirubinaemia [Unknown]
  - Atrial septal defect [Unknown]
  - Bradycardia neonatal [Recovered/Resolved]

NARRATIVE: CASE EVENT DATE: 200911
